FAERS Safety Report 9534993 (Version 1)
Quarter: 2013Q3

REPORT INFORMATION
  Report Type: Spontaneous
  Country: FR (occurrence: FR)
  Receive Date: 20130918
  Receipt Date: 20130918
  Transmission Date: 20140515
  Serious: Yes (Other)
  Sender: FDA-Public Use
  Company Number: PHHY2013FR100754

PATIENT
  Age: 64 Year
  Sex: Female

DRUGS (3)
  1. FLUOXETINE [Suspect]
     Indication: MAJOR DEPRESSION
  2. BUPROPION [Suspect]
     Indication: MAJOR DEPRESSION
  3. TRAMADOL [Concomitant]
     Dosage: 100 MG, UNK

REACTIONS (2)
  - Restless legs syndrome [Unknown]
  - Condition aggravated [Unknown]
